FAERS Safety Report 22283428 (Version 2)
Quarter: 2023Q2

REPORT INFORMATION
  Report Type: Report from Study
  Country: US (occurrence: US)
  Receive Date: 20230504
  Receipt Date: 20230518
  Transmission Date: 20230722
  Serious: Yes (Hospitalization, Other)
  Sender: FDA-Public Use
  Company Number: US-JAZZ PHARMACEUTICALS-2023-US-005433

PATIENT
  Sex: Female

DRUGS (4)
  1. XYWAV [Suspect]
     Active Substance: CALCIUM OXYBATE\MAGNESIUM OXYBATE\POTASSIUM OXYBATE\SODIUM OXYBATE
     Indication: Hypersomnia
     Dosage: 6 GRAM, NIGHTLY
     Dates: start: 20230226
  2. ADDERALL [Suspect]
     Active Substance: AMPHETAMINE ASPARTATE\AMPHETAMINE SULFATE\DEXTROAMPHETAMINE SACCHARATE\DEXTROAMPHETAMINE SULFATE
     Indication: Product used for unknown indication
  3. ABILIFY [Concomitant]
     Active Substance: ARIPIPRAZOLE
     Indication: Product used for unknown indication
     Dosage: 15 MILLIGRAM, EVERY MORNING
     Dates: start: 20230419
  4. CYMBALTA [Concomitant]
     Active Substance: DULOXETINE HYDROCHLORIDE
     Indication: Product used for unknown indication
     Dosage: UNK

REACTIONS (14)
  - Mania [Unknown]
  - Weight decreased [Unknown]
  - Hypertension [Recovering/Resolving]
  - Decreased appetite [Unknown]
  - Enuresis [Unknown]
  - Breakthrough pain [Unknown]
  - Purging [Recovering/Resolving]
  - Hypotension [Unknown]
  - Nervousness [Unknown]
  - Hyperventilation [Unknown]
  - Anger [Unknown]
  - Nerve block [Unknown]
  - Heart rate increased [Unknown]
  - Intentional dose omission [Unknown]
